FAERS Safety Report 6025902-4 (Version None)
Quarter: 2008Q4

REPORT INFORMATION
  Report Type: 
  Country: None (occurrence: None)
  Receive Date: 20081224
  Receipt Date: 20081215
  Transmission Date: 20090506
  Serious: Yes (Other)
  Sender: FDA-Public Use
  Company Number: CHPA2008US22440

PATIENT
  Sex: Male

DRUGS (2)
  1. NODOZ (NCH) (CAFFEINE) CAPLET [Suspect]
  2. VITAMINS (NO INGREDIENTS/SUBSTANCES) [Concomitant]

REACTIONS (4)
  - ACTIVITIES OF DAILY LIVING IMPAIRED [None]
  - DEPRESSION [None]
  - HYPERSOMNIA [None]
  - INTENTIONAL DRUG MISUSE [None]
